FAERS Safety Report 22160982 (Version 1)
Quarter: 2023Q1

REPORT INFORMATION
  Report Type: Spontaneous
  Country: US (occurrence: None)
  Receive Date: 20230331
  Receipt Date: 20230331
  Transmission Date: 20230418
  Serious: No
  Sender: FDA-Public Use
  Company Number: None

PATIENT
  Age: 55 Year
  Sex: Female
  Weight: 83.25 kg

DRUGS (3)
  1. GAMUNEX-C [Suspect]
     Active Substance: HUMAN IMMUNOGLOBULIN G
     Indication: Chronic inflammatory demyelinating polyradiculoneuropathy
     Route: 042
  2. Acetaminophen 500MG TAB [Concomitant]
  3. Diphenhydramine 25MG CAP [Concomitant]

REACTIONS (4)
  - Infusion site erythema [None]
  - Infusion site pain [None]
  - Infusion site swelling [None]
  - Infusion site induration [None]

NARRATIVE: CASE EVENT DATE: 20230318
